FAERS Safety Report 19756151 (Version 5)
Quarter: 2022Q2

REPORT INFORMATION
  Report Type: Report from Study
  Country: CA (occurrence: CA)
  Receive Date: 20210827
  Receipt Date: 20220407
  Transmission Date: 20220720
  Serious: Yes (Hospitalization, Other)
  Sender: FDA-Public Use
  Company Number: CA-TAKEDA-2021TUS053049

PATIENT
  Age: 56 Year
  Sex: Female

DRUGS (4)
  1. VEDOLIZUMAB [Suspect]
     Active Substance: VEDOLIZUMAB
     Indication: Colitis ulcerative
     Dosage: 300 MILLIGRAM
     Route: 042
     Dates: start: 20210322
  2. VEDOLIZUMAB [Suspect]
     Active Substance: VEDOLIZUMAB
     Dosage: 300 MILLIGRAM
     Route: 042
  3. VEDOLIZUMAB [Suspect]
     Active Substance: VEDOLIZUMAB
     Dosage: 300 MILLIGRAM
     Route: 042
  4. SYNTHROID [Concomitant]
     Active Substance: LEVOTHYROXINE SODIUM
     Dosage: UNK

REACTIONS (13)
  - Dehydration [Unknown]
  - Decreased appetite [Unknown]
  - Nausea [Unknown]
  - Nephrolithiasis [Unknown]
  - Hypersomnia [Unknown]
  - Faeces hard [Unknown]
  - Abdominal pain lower [Unknown]
  - Abdominal pain upper [Unknown]
  - Faeces discoloured [Unknown]
  - Abdominal distension [Unknown]
  - Dyspepsia [Unknown]
  - Fatigue [Unknown]
  - Constipation [Unknown]

NARRATIVE: CASE EVENT DATE: 20210802
